FAERS Safety Report 25410863 (Version 2)
Quarter: 2025Q3

REPORT INFORMATION
  Report Type: Spontaneous
  Country: US (occurrence: US)
  Receive Date: 20250609
  Receipt Date: 20250728
  Transmission Date: 20251020
  Serious: No
  Sender: ELI LILLY AND COMPANY
  Company Number: US-ELI_LILLY_AND_COMPANY-US202506004507

PATIENT
  Age: 77 Year
  Sex: Female

DRUGS (2)
  1. ZEPBOUND [Suspect]
     Active Substance: TIRZEPATIDE
     Indication: Product used for unknown indication
     Route: 058
     Dates: start: 20250530
  2. ZEPBOUND [Suspect]
     Active Substance: TIRZEPATIDE
     Route: 058

REACTIONS (5)
  - Herpes zoster [Recovering/Resolving]
  - Paraesthesia [Unknown]
  - Feeling abnormal [Unknown]
  - Post herpetic neuralgia [Unknown]
  - Nausea [Unknown]

NARRATIVE: CASE EVENT DATE: 20250601
